FAERS Safety Report 11079103 (Version 1)
Quarter: 2015Q2

REPORT INFORMATION
  Report Type: Spontaneous
  Country: US (occurrence: None)
  Receive Date: 20150429
  Receipt Date: 20150429
  Transmission Date: 20150821
  Serious: Yes (Hospitalization)
  Sender: FDA-Public Use
  Company Number: None

PATIENT
  Age: 72 Year
  Sex: Female
  Weight: 97.7 kg

DRUGS (17)
  1. WARFARIN [Suspect]
     Active Substance: WARFARIN
     Indication: ATRIAL FIBRILLATION
     Dosage: 5MG, QD, ORAL
     Route: 048
     Dates: start: 20060202, end: 20150427
  2. VITAMIN D [Concomitant]
     Active Substance: CHOLECALCIFEROL
  3. LASIX [Concomitant]
     Active Substance: FUROSEMIDE
  4. SYNTHROID [Concomitant]
     Active Substance: LEVOTHYROXINE SODIUM
  5. PREDNISONE (DELTASONE) [Concomitant]
  6. DIOVAN [Concomitant]
     Active Substance: VALSARTAN
  7. DOCUSATE SODIUM. [Concomitant]
     Active Substance: DOCUSATE SODIUM
  8. VITAMIN D3 [Concomitant]
     Active Substance: CHOLECALCIFEROL
  9. OXYCODONE-ACETAMINOPHEN (PERCOCET) [Concomitant]
  10. CHOLECALCIFEROL [Concomitant]
     Active Substance: CHOLECALCIFEROL
  11. MELATONIN [Concomitant]
     Active Substance: MELATONIN
  12. ASCORBIC ACID (VITAMIN C) [Concomitant]
     Active Substance: ASCORBIC ACID
  13. BUPRENORPHINE (BUTRANS) [Concomitant]
  14. ASPIRIN (ECOTRIN) [Concomitant]
  15. METHYLCELLULOSE [Concomitant]
     Active Substance: METHYLCELLULOSES
  16. VOLTAREN [Concomitant]
     Active Substance: DICLOFENAC SODIUM
  17. FERROUS SULFATE [Concomitant]
     Active Substance: FERROUS SULFATE\FERROUS SULFATE, DRIED

REACTIONS (2)
  - Traumatic intracranial haemorrhage [None]
  - Fall [None]

NARRATIVE: CASE EVENT DATE: 20150427
